FAERS Safety Report 19482687 (Version 1)
Quarter: 2021Q3

REPORT INFORMATION
  Report Type: Spontaneous
  Country: US (occurrence: US)
  Receive Date: 20210701
  Receipt Date: 20210701
  Transmission Date: 20211014
  Serious: Yes (Death, Other)
  Sender: FDA-Public Use
  Company Number: NVSC2021US147073

PATIENT
  Sex: Female

DRUGS (1)
  1. TASIGNA [Suspect]
     Active Substance: NILOTINIB
     Indication: CHRONIC MYELOID LEUKAEMIA
     Dosage: UNK
     Route: 065
     Dates: start: 201305, end: 201806

REACTIONS (11)
  - Peripheral vascular disorder [Unknown]
  - Arteriosclerosis [Unknown]
  - Death [Fatal]
  - Injury [Unknown]
  - Vascular stenosis [Unknown]
  - Dry gangrene [Unknown]
  - Anxiety [Unknown]
  - Skin ulcer [Unknown]
  - Nail necrosis [Unknown]
  - Emotional distress [Unknown]
  - Pain [Unknown]
